FAERS Safety Report 9780340 (Version 1)
Quarter: 2013Q4

REPORT INFORMATION
  Report Type: Spontaneous
  Country: SE (occurrence: SE)
  Receive Date: 20131224
  Receipt Date: 20131224
  Transmission Date: 20140711
  Serious: Yes (Other)
  Sender: FDA-Public Use
  Company Number: SE-AMGEN-SWESP2013089783

PATIENT
  Age: 47 Year
  Sex: Female

DRUGS (5)
  1. ENBREL [Suspect]
     Indication: RHEUMATOID ARTHRITIS
     Dosage: 50 MG, WEEKLY
     Route: 058
     Dates: start: 201204, end: 20130717
  2. VOLTAREN [Concomitant]
     Dosage: 50MG, 3X/DAY
  3. BEHEPAN [Concomitant]
     Dosage: 1MG, 1X/DAY
  4. TRADOLAN [Concomitant]
     Dosage: UNK, AS NEEDED
  5. ALVEDON [Concomitant]
     Dosage: UNK, AS NEEDED

REACTIONS (2)
  - Nocturnal dyspnoea [Recovered/Resolved]
  - Cough [Recovered/Resolved]
